FAERS Safety Report 9243162 (Version 1)
Quarter: 2013Q2

REPORT INFORMATION
  Report Type: Spontaneous
  Country: GB (occurrence: GB)
  Receive Date: 20130419
  Receipt Date: 20130419
  Transmission Date: 20140414
  Serious: Yes (Other)
  Sender: FDA-Public Use
  Company Number: GB-009507513-1210GBR002971

PATIENT
  Age: 29 Year
  Sex: Female
  Weight: 41.3 kg

DRUGS (1)
  1. NEXPLANON [Suspect]
     Indication: CONTRACEPTION
     Dosage: 1 DF, UNK
     Route: 059
     Dates: start: 20110819, end: 20121003

REACTIONS (3)
  - Unintended pregnancy [Recovered/Resolved]
  - Abortion spontaneous [Unknown]
  - Social problem [Unknown]
